FAERS Safety Report 16464321 (Version 1)
Quarter: 2019Q3

REPORT INFORMATION
  Report Type: Spontaneous
  Country: US (occurrence: US)
  Receive Date: 20190620
  Receipt Date: 20190620
  Transmission Date: 20191004
  Serious: Yes (Hospitalization)
  Sender: FDA-Public Use
  Company Number: None

PATIENT
  Age: 47 Year
  Sex: Female

DRUGS (8)
  1. HYDROCODONE [Concomitant]
     Active Substance: HYDROCODONE
     Dates: start: 20190620
  2. DULOXETINE. [Concomitant]
     Active Substance: DULOXETINE
     Dates: start: 20190620
  3. GLATIRAMER [Suspect]
     Active Substance: GLATIRAMER
     Indication: MULTIPLE SCLEROSIS
     Route: 058
     Dates: start: 20181106
  4. DIAZEPAM. [Concomitant]
     Active Substance: DIAZEPAM
     Dates: start: 20190620
  5. DALFAMPRIDINE. [Suspect]
     Active Substance: DALFAMPRIDINE
     Indication: MULTIPLE SCLEROSIS
     Route: 048
     Dates: start: 20181106
  6. BACLOFEN. [Concomitant]
     Active Substance: BACLOFEN
     Dates: start: 20190620
  7. ADDERALL XR [Concomitant]
     Active Substance: AMPHETAMINE ASPARTATE\AMPHETAMINE SULFATE\DEXTROAMPHETAMINE SACCHARATE\DEXTROAMPHETAMINE SULFATE
     Dates: start: 20190620
  8. ONDANSETRON. [Concomitant]
     Active Substance: ONDANSETRON
     Dates: start: 20190620

REACTIONS (3)
  - Multiple sclerosis relapse [None]
  - Road traffic accident [None]
  - Oedema peripheral [None]

NARRATIVE: CASE EVENT DATE: 20180202
